FAERS Safety Report 25807940 (Version 3)
Quarter: 2025Q4

REPORT INFORMATION
  Report Type: Spontaneous
  Country: JP (occurrence: JP)
  Receive Date: 20250916
  Receipt Date: 20251008
  Transmission Date: 20260117
  Serious: Yes (Death)
  Sender: DAIICHI
  Company Number: JP-DSJP-DS-2025-164102-JP

PATIENT
  Age: 61 Year
  Sex: Female

DRUGS (3)
  1. DATROWAY [Suspect]
     Active Substance: DATOPOTAMAB DERUXTECAN-DLNK
     Indication: Hormone receptor positive HER2 negative breast cancer
     Dosage: 6 MG/KG(280MG), ONCE EVERY 3 WK
     Route: 041
     Dates: start: 20250507, end: 20250710
  2. SOFT SANTEAR [Concomitant]
     Indication: Prophylaxis
     Dosage: UNK
     Route: 047
     Dates: start: 20250507, end: 20250827
  3. SOFT SANTEAR [Concomitant]
     Indication: Corneal disorder

REACTIONS (4)
  - Disease progression [Fatal]
  - Keratitis [Recovered/Resolved]
  - Stomatitis [Recovered/Resolved]
  - Nausea [Unknown]

NARRATIVE: CASE EVENT DATE: 20250101
